FAERS Safety Report 14096750 (Version 1)
Quarter: 2017Q4

REPORT INFORMATION
  Report Type: Report from Study
  Country: US (occurrence: US)
  Receive Date: 20171017
  Receipt Date: 20171017
  Transmission Date: 20180321
  Serious: Yes (Death, Other)
  Sender: FDA-Public Use
  Company Number: US-ROCHE-2007914

PATIENT

DRUGS (1)
  1. RITUXIMAB. [Suspect]
     Active Substance: RITUXIMAB
     Indication: ACUTE GRAFT VERSUS HOST DISEASE
     Route: 042

REACTIONS (15)
  - Palmar-plantar erythrodysaesthesia syndrome [Unknown]
  - Sepsis [Unknown]
  - Ascites [Unknown]
  - Aspartate aminotransferase abnormal [Unknown]
  - Clostridium difficile infection [Unknown]
  - Graft versus host disease in gastrointestinal tract [Unknown]
  - Mental status changes [Unknown]
  - Hypocalcaemia [Unknown]
  - Venoocclusive liver disease [Fatal]
  - Blood bilirubin increased [Unknown]
  - Hyponatraemia [Unknown]
  - Mucosal inflammation [Unknown]
  - Deep vein thrombosis [Unknown]
  - Decreased appetite [Unknown]
  - Hypoalbuminaemia [Unknown]

NARRATIVE: CASE EVENT DATE: 20111120
